FAERS Safety Report 7794215-2 (Version None)
Quarter: 2011Q4

REPORT INFORMATION
  Report Type: 
  Country: None (occurrence: None)
  Receive Date: 20111004
  Receipt Date: 20110307
  Transmission Date: 20120403
  Serious: No
  Sender: FDA-Public Use
  Company Number: US-VIIV HEALTHCARE LIMITED-A0916973A

PATIENT
  Age: 59 Year
  Sex: Male

DRUGS (4)
  1. ISENTRESS [Concomitant]
  2. ANDROGEL [Concomitant]
  3. SELZENTRY [Suspect]
     Indication: HIV INFECTION
     Dosage: 300MG TWICE PER DAY
     Route: 048
     Dates: start: 20110125, end: 20110215
  4. DIAZEPAM [Concomitant]

REACTIONS (9)
  - MYALGIA [None]
  - BLOOD CALCIUM DECREASED [None]
  - INFLUENZA LIKE ILLNESS [None]
  - BLOOD POTASSIUM DECREASED [None]
  - CARBON DIOXIDE DECREASED [None]
  - ARTHRALGIA [None]
  - BLOOD CHLORIDE DECREASED [None]
  - ELECTROLYTE IMBALANCE [None]
  - BLOOD GLUCOSE INCREASED [None]
